FAERS Safety Report 8345218-0 (Version None)
Quarter: 2012Q2

REPORT INFORMATION
  Report Type: 
  Country: None (occurrence: None)
  Receive Date: 20120508
  Receipt Date: 20120426
  Transmission Date: 20120825
  Serious: No
  Sender: FDA-Public Use
  Company Number: JP-VERTEX PHARMACEUTICALS INC.-AE-2012-006319

PATIENT
  Age: 61 Year
  Sex: Male

DRUGS (10)
  1. RIBAVIRIN [Concomitant]
     Route: 048
     Dates: start: 20120403, end: 20120416
  2. LOXONIN [Concomitant]
     Route: 048
     Dates: start: 20120410
  3. TELAVIC (TELAPREVIR) [Suspect]
     Indication: HEPATITIS C
     Route: 048
     Dates: start: 20120305, end: 20120402
  4. ALLOPURINOL [Concomitant]
     Dates: start: 20120424
  5. TELAVIC (TELAPREVIR) [Suspect]
     Route: 048
     Dates: start: 20120403
  6. RIBAVIRIN [Concomitant]
     Route: 048
     Dates: start: 20120417
  7. RIBAVIRIN [Concomitant]
     Route: 048
     Dates: start: 20120305, end: 20120326
  8. ZOLPIDEM [Concomitant]
     Route: 048
     Dates: start: 20120311
  9. RIBAVIRIN [Concomitant]
     Route: 048
     Dates: start: 20120327, end: 20120402
  10. PEGINTERFERON ALFA-2B [Concomitant]
     Route: 051
     Dates: start: 20120305

REACTIONS (1)
  - RENAL IMPAIRMENT [None]
